FAERS Safety Report 4500225-0 (Version None)
Quarter: 2004Q4

REPORT INFORMATION
  Report Type: 
  Country: None (occurrence: None)
  Receive Date: 20041108
  Receipt Date: 20041027
  Transmission Date: 20050328
  Serious: Yes (Hospitalization)
  Sender: FDA-Public Use
  Company Number: 200410500BYL

PATIENT
  Age: 4 Year
  Sex: Male
  Weight: 12.9 kg

DRUGS (4)
  1. GAMIMUNE N 5% [Suspect]
     Indication: KAWASAKI'S DISEASE
     Dosage: SEE IMAGE
     Route: 042
     Dates: start: 20040910, end: 20040911
  2. GAMIMUNE N 5% [Suspect]
     Indication: KAWASAKI'S DISEASE
     Dosage: SEE IMAGE
     Route: 042
     Dates: start: 20040911
  3. GAMIMUNE N 5% [Suspect]
     Indication: KAWASAKI'S DISEASE
     Dosage: SEE IMAGE
     Route: 042
     Dates: start: 20040921
  4. GAMIMUNE N 5% [Suspect]

REACTIONS (1)
  - PLATELET COUNT DECREASED [None]
